FAERS Safety Report 11049735 (Version 2)
Quarter: 2015Q4

REPORT INFORMATION
  Report Type: Spontaneous
  Country: US (occurrence: US)
  Receive Date: 20150420
  Receipt Date: 20151021
  Transmission Date: 20160304
  Serious: No
  Sender: FDA-Public Use
  Company Number: US-PURDUE-USA-2015-0121597

PATIENT
  Age: 51 Year
  Sex: Male
  Weight: 85.26 kg

DRUGS (4)
  1. OXYCONTIN [Suspect]
     Active Substance: OXYCODONE HYDROCHLORIDE
     Indication: MUSCULOSKELETAL PAIN
     Dosage: 30 MG, BID
     Route: 048
     Dates: start: 201405
  2. CLONAZEPAM. [Concomitant]
     Active Substance: CLONAZEPAM
     Indication: PRODUCT USED FOR UNKNOWN INDICATION
     Dosage: UNK MG, UNK
     Route: 048
  3. OXYCONTIN [Suspect]
     Active Substance: OXYCODONE HYDROCHLORIDE
     Indication: NECK PAIN
  4. OXYCONTIN [Suspect]
     Active Substance: OXYCODONE HYDROCHLORIDE
     Indication: MUSCLE SPASMS

REACTIONS (13)
  - Headache [Unknown]
  - Quality of life decreased [Unknown]
  - Non-cardiac chest pain [Not Recovered/Not Resolved]
  - Sleep disorder [Unknown]
  - Pain [Not Recovered/Not Resolved]
  - Eye pain [Unknown]
  - Drug effect decreased [Unknown]
  - Migraine [Not Recovered/Not Resolved]
  - Musculoskeletal pain [Unknown]
  - Fatigue [Not Recovered/Not Resolved]
  - Drug ineffective [Unknown]
  - Hypersomnia [Unknown]
  - Regurgitation [Unknown]

NARRATIVE: CASE EVENT DATE: 2014
